FAERS Safety Report 23699083 (Version 1)
Quarter: 2024Q2

REPORT INFORMATION
  Report Type: Other
  Country: CN (occurrence: CN)
  Receive Date: 20240402
  Receipt Date: 20240402
  Transmission Date: 20240716
  Serious: Yes (Other)
  Sender: FDA-Public Use
  Company Number: CN-TETRAPHASE PHARMACEUTICALS, INC-2024-INNO-CN000013

PATIENT

DRUGS (1)
  1. XERAVA [Suspect]
     Active Substance: ERAVACYCLINE DIHYDROCHLORIDE
     Indication: Anti-infective therapy
     Dosage: 75 MG, BID, Q12H, POWDER INJECTION
     Route: 041
     Dates: start: 20240125, end: 20240129

REACTIONS (3)
  - Blood fibrinogen decreased [Not Recovered/Not Resolved]
  - Prothrombin time prolonged [Not Recovered/Not Resolved]
  - International normalised ratio increased [Unknown]
